FAERS Safety Report 16153642 (Version 2)
Quarter: 2019Q2

REPORT INFORMATION
  Report Type: Spontaneous
  Country: RU (occurrence: RU)
  Receive Date: 20190403
  Receipt Date: 20190404
  Transmission Date: 20190711
  Serious: Yes (Hospitalization, Other)
  Sender: FDA-Public Use
  Company Number: RU-ASTRAZENECA-2019SE48448

PATIENT
  Age: 15401 Day
  Sex: Male
  Weight: 102 kg

DRUGS (4)
  1. CONCOR [Concomitant]
     Active Substance: BISOPROLOL FUMARATE
     Indication: HYPERTENSION
     Dosage: 5/5 MG
     Dates: start: 20190304
  2. FORXIGA [Suspect]
     Active Substance: DAPAGLIFLOZIN
     Indication: TYPE 2 DIABETES MELLITUS
     Route: 048
     Dates: start: 2017
  3. GLIBOMET [Concomitant]
     Active Substance: GLYBURIDE\METFORMIN HYDROCHLORIDE
     Dosage: 2.5/400 2 TIMES A DAY
  4. CARDIOMAGNYL [Concomitant]
     Active Substance: ASPIRIN\MAGNESIUM HYDROXIDE
     Indication: HYPERTENSION
     Dosage: 75.0MG UNKNOWN
     Route: 048
     Dates: start: 20190304

REACTIONS (4)
  - Blood glucose increased [Unknown]
  - Urine ketone body [Unknown]
  - Ketosis [Recovered/Resolved]
  - Glycosuria [Unknown]

NARRATIVE: CASE EVENT DATE: 20190304
